FAERS Safety Report 4840946-3 (Version None)
Quarter: 2005Q4

REPORT INFORMATION
  Report Type: 
  Country: None (occurrence: None)
  Receive Date: 20051130
  Receipt Date: 20050802
  Transmission Date: 20060501
  Serious: No
  Sender: FDA-Public Use
  Company Number: US-BRISTOL-MYERS SQUIBB COMPANY-13059688

PATIENT
  Age: 46 Year
  Sex: Female
  Weight: 89 kg

DRUGS (8)
  1. ABILIFY [Suspect]
     Indication: DEPRESSION
     Route: 048
     Dates: start: 20050101, end: 20050101
  2. XANAX [Concomitant]
  3. SYNTHROID [Concomitant]
  4. DESIPRAMINE HCL [Concomitant]
  5. TAMOXIFEN [Concomitant]
  6. MIRALAX [Concomitant]
  7. LEXAPRO [Concomitant]
  8. PROTONIX [Concomitant]

REACTIONS (1)
  - ALOPECIA [None]
